FAERS Safety Report 7723529-7 (Version None)
Quarter: 2011Q3

REPORT INFORMATION
  Report Type: 
  Country: None (occurrence: None)
  Receive Date: 20110901
  Receipt Date: 20110822
  Transmission Date: 20111222
  Serious: Yes (Other)
  Sender: FDA-Public Use
  Company Number: PHHY2011BR38551

PATIENT
  Age: 87 Year
  Sex: Female

DRUGS (9)
  1. GILFAGE [Concomitant]
     Indication: BLOOD GLUCOSE
     Dosage: 500 MG, BID
  2. OMEPRAZOLE [Concomitant]
     Indication: ULCER
     Dosage: 20 MG, QD
  3. EXELON [Suspect]
     Dosage: 9 MG/5CM2
     Route: 062
  4. EXELON [Suspect]
     Dosage: 18 MG/10CM2
     Route: 062
  5. LOZARTANA [Concomitant]
     Indication: HYPERTENSION
     Dosage: 50 MG, BID
  6. CLOPIDOGREL [Concomitant]
     Indication: CARDIAC DISORDER
     Dosage: 1 DF, PER DAY
  7. BALCOR [Concomitant]
     Indication: CARDIAC DISORDER
     Dosage: UNK UKN, UNK
     Dates: end: 20110201
  8. LEVOTHYROXINE SODIUM [Concomitant]
     Indication: THYROID DISORDER
     Dosage: 75 MG, QD
  9. ISOSORBIDE DINITRATE [Concomitant]
     Indication: BLOOD PRESSURE
     Dosage: 20 MG, BID

REACTIONS (5)
  - SWOLLEN TONGUE [None]
  - OEDEMA PERIPHERAL [None]
  - DYSPNOEA [None]
  - APPLICATION SITE HYPERSENSITIVITY [None]
  - APPLICATION SITE ERYTHEMA [None]
